FAERS Safety Report 6313791-X (Version None)
Quarter: 2009Q3

REPORT INFORMATION
  Report Type: 
  Country: None (occurrence: None)
  Receive Date: 20090818
  Receipt Date: 20090218
  Transmission Date: 20100115
  Serious: Yes (Other)
  Sender: FDA-Public Use
  Company Number: US-BRISTOL-MYERS SQUIBB COMPANY-14511307

PATIENT
  Age: 45 Year
  Sex: Male

DRUGS (3)
  1. REYATAZ [Suspect]
  2. TRUVADA [Concomitant]
  3. NORVIR [Concomitant]

REACTIONS (1)
  - ELECTROCARDIOGRAM QT PROLONGED [None]
